FAERS Safety Report 12327702 (Version 1)
Quarter: 2016Q2

REPORT INFORMATION
  Report Type: Spontaneous
  Country: US (occurrence: US)
  Receive Date: 20160503
  Receipt Date: 20160503
  Transmission Date: 20160815
  Serious: Yes (Hospitalization, Other)
  Sender: FDA-Public Use
  Company Number: US-PFIZER INC-2016228128

PATIENT
  Age: 60 Year
  Sex: Female

DRUGS (4)
  1. DILANTIN [Suspect]
     Active Substance: PHENYTOIN
     Dosage: 200 MG, DAILY
     Dates: start: 201604
  2. DILANTIN [Suspect]
     Active Substance: PHENYTOIN
     Indication: SEIZURE
     Dosage: 300 MG, DAILY
     Route: 048
     Dates: start: 2009
  3. KEPPRA [Concomitant]
     Active Substance: LEVETIRACETAM
     Dosage: 500MG TWICE A DAY
  4. KEPPRA [Concomitant]
     Active Substance: LEVETIRACETAM
     Dosage: 750MG TWICE A DAY
     Dates: start: 20160325

REACTIONS (15)
  - Myocardial infarction [Unknown]
  - Brain oedema [Unknown]
  - Panic attack [Not Recovered/Not Resolved]
  - Poor quality sleep [Unknown]
  - Balance disorder [Recovering/Resolving]
  - Joint stiffness [Not Recovered/Not Resolved]
  - Fatigue [Not Recovered/Not Resolved]
  - Abasia [Unknown]
  - Gingival hyperplasia [Unknown]
  - Anaemia [Unknown]
  - Musculoskeletal stiffness [Not Recovered/Not Resolved]
  - Nervousness [Not Recovered/Not Resolved]
  - Anxiety [Not Recovered/Not Resolved]
  - Memory impairment [Unknown]
  - Cerebrovascular accident [Unknown]

NARRATIVE: CASE EVENT DATE: 2009
